FAERS Safety Report 19969868 (Version 2)
Quarter: 2021Q4

REPORT INFORMATION
  Report Type: Spontaneous
  Country: GB (occurrence: GB)
  Receive Date: 20211019
  Receipt Date: 20211103
  Transmission Date: 20220304
  Serious: Yes (Hospitalization)
  Sender: FDA-Public Use
  Company Number: GB-GLAXOSMITHKLINE-GB2020EME127066

PATIENT
  Age: 57 Year
  Sex: Female

DRUGS (59)
  1. PAROXETINE [Suspect]
     Active Substance: PAROXETINE
     Indication: Product used for unknown indication
     Dosage: UNK (1 TO BE TAKEN DAILY)
     Dates: start: 20050314, end: 20050413
  2. PAROXETINE [Suspect]
     Active Substance: PAROXETINE
     Dosage: UNK (1 TO BE TAKEN DAILY)
     Dates: start: 20030416, end: 20030516
  3. PAROXETINE [Suspect]
     Active Substance: PAROXETINE
     Dosage: UNK (1 TO BE TAKEN IN MONTH)
     Dates: start: 20000119, end: 20000218
  4. PAROXETINE [Suspect]
     Active Substance: PAROXETINE
     Dosage: UNK (1 TO BE TAKEN EACH MORNING)
     Dates: start: 20111129, end: 20120124
  5. PAROXETINE [Suspect]
     Active Substance: PAROXETINE
     Dosage: UNK (1 TO BE TAKEN DAILY)
     Dates: start: 20040526, end: 20040625
  6. PAROXETINE [Suspect]
     Active Substance: PAROXETINE
     Dosage: UNK ( 1 TO BE TAKEN IN MONTH)
     Dates: start: 20001229, end: 20010128
  7. PAROXETINE [Suspect]
     Active Substance: PAROXETINE
     Dosage: UNK (1 TO BE TAKEN IN MONTH)
     Dates: start: 20000221, end: 20000322
  8. PAROXETINE [Suspect]
     Active Substance: PAROXETINE
     Dosage: UNK (1 TO BE TAKEN EACH MORNING)
     Dates: start: 20140416, end: 20140514
  9. PAROXETINE [Suspect]
     Active Substance: PAROXETINE
     Dosage: UNK (1 TO BE TAKEN IN MONTH)
     Dates: start: 19990629, end: 19990729
  10. PAROXETINE [Suspect]
     Active Substance: PAROXETINE
     Dosage: UNK (1 TO BE TAKEN IN MONTH)
     Dates: start: 19990408, end: 19990508
  11. PAROXETINE [Suspect]
     Active Substance: PAROXETINE
     Dosage: UNK (1 TO BE TAKEN DAILY)
     Dates: start: 20040714, end: 20040813
  12. PAROXETINE [Suspect]
     Active Substance: PAROXETINE
     Dosage: UNK (1 TO BE TAKEN DAILY)
     Dates: start: 20071220, end: 20080117
  13. PAROXETINE [Suspect]
     Active Substance: PAROXETINE
     Dosage: UNK (20/15 MG ALTERNATE DAYS)
     Dates: start: 20100924, end: 20100925
  14. PAROXETINE [Suspect]
     Active Substance: PAROXETINE
     Dosage: UNK(1 TO BE TAKEN EACH MORNING)
     Dates: start: 20120503, end: 20120628
  15. PAROXETINE [Suspect]
     Active Substance: PAROXETINE
     Dosage: UNK (1 TO BE TAKEN DAILY)
     Dates: start: 20031020, end: 20031119
  16. PAROXETINE [Suspect]
     Active Substance: PAROXETINE
     Dosage: UNK (1 TO BE TAKEN EACH MORNING)
     Dates: start: 20131106, end: 20140101
  17. PAROXETINE [Suspect]
     Active Substance: PAROXETINE
     Dosage: UNK (1 TO BE TAKEN DAILY)
     Dates: start: 20040108, end: 20040207
  18. PAROXETINE [Suspect]
     Active Substance: PAROXETINE
     Dosage: UNK (1 TO BE TAKEN EACH MORNING)
     Dates: start: 20101222, end: 20110121
  19. PAROXETINE [Suspect]
     Active Substance: PAROXETINE
     Dosage: UNK (1 TO BE TAKEN IN MONTH)
     Dates: start: 20000327, end: 20000426
  20. PAROXETINE [Suspect]
     Active Substance: PAROXETINE
     Dosage: UNK (1 TO BE TAKEN IN MONTH)
     Dates: start: 20000817, end: 20000916
  21. PAROXETINE [Suspect]
     Active Substance: PAROXETINE
     Dosage: UNK (1 TO BE TAKEN DAILY)
     Dates: start: 20010412, end: 20010512
  22. PAROXETINE [Suspect]
     Active Substance: PAROXETINE
     Dosage: UNK (1 TO BE TAKEN IN MONTH)
     Dates: start: 20010214, end: 20010316
  23. PAROXETINE [Suspect]
     Active Substance: PAROXETINE
     Dosage: UNK(1 TO BE TAKEN IN MONTH)
     Dates: start: 19990429, end: 19990529
  24. PAROXETINE [Suspect]
     Active Substance: PAROXETINE
     Dosage: UNK (1 TO BE TAKEN EACH MORNING)
     Dates: start: 20110704, end: 20110829
  25. PAROXETINE [Suspect]
     Active Substance: PAROXETINE
     Dosage: UNK (1 TO BE TAKEN EACH MORNING)
     Dates: start: 20140311, end: 20140408
  26. PAROXETINE [Suspect]
     Active Substance: PAROXETINE
     Dosage: UNK (1 TO BE TAKEN EACH MORNING)
     Dates: start: 20110912, end: 20111107
  27. PAROXETINE [Suspect]
     Active Substance: PAROXETINE
     Dosage: UNK (1 TO BE TAKEN IN MONTH)
     Dates: start: 19991101, end: 19991201
  28. PAROXETINE [Suspect]
     Active Substance: PAROXETINE
     Dosage: UNK (1 TO BE TAKEN DAILY)
     Dates: start: 20030806, end: 20030905
  29. PAROXETINE [Suspect]
     Active Substance: PAROXETINE
     Dosage: UNK (1 TO BE TAKEN DAILY)
     Dates: start: 20041111, end: 20041211
  30. PAROXETINE [Suspect]
     Active Substance: PAROXETINE
     Dosage: UNK (1 TO BE TAKEN IN MONTH)
     Dates: start: 20000705, end: 20000804
  31. PAROXETINE [Suspect]
     Active Substance: PAROXETINE
     Dosage: UNK (1 TO BE TAKEN DAILY)
     Dates: start: 20070522, end: 20070619
  32. PAROXETINE [Suspect]
     Active Substance: PAROXETINE
     Dosage: UNK (1 TO BE TAKEN DAILY)
     Dates: start: 20070626, end: 20070724
  33. PAROXETINE [Suspect]
     Active Substance: PAROXETINE
     Dosage: UNK (1 TO BE TAKEN DAILY)
     Dates: start: 20040324, end: 20040423
  34. PAROXETINE [Suspect]
     Active Substance: PAROXETINE
     Dosage: UNK (1 TO BE TAKEN DAILY)
     Dates: start: 20040423, end: 20041023
  35. PAROXETINE [Suspect]
     Active Substance: PAROXETINE
     Dosage: UNK (1 TO BE TAKEN IN EACH MORNING)
     Dates: start: 20140930, end: 20141028
  36. PAROXETINE [Suspect]
     Active Substance: PAROXETINE
     Dosage: UNK (1 TO BE TAKEN IN MONTH)
     Dates: start: 19991216, end: 20000115
  37. PAROXETINE [Suspect]
     Active Substance: PAROXETINE
     Dosage: UNK (1 TO BE TAKEN IN MONTH)
     Dates: start: 19990825, end: 19990924
  38. PAROXETINE [Suspect]
     Active Substance: PAROXETINE
     Dosage: UNK (1 TO BE TAKEN DAILY)
     Dates: start: 20070330, end: 20070427
  39. PAROXETINE [Suspect]
     Active Substance: PAROXETINE
     Dosage: UNK (1 TO BE TAKEN EACH MORNING)
     Dates: start: 20130528, end: 20130723
  40. PAROXETINE [Suspect]
     Active Substance: PAROXETINE
     Dosage: UNK (1 TO BE TAKEN EACH MORNING)
     Dates: start: 20140519, end: 20140616
  41. PAROXETINE [Suspect]
     Active Substance: PAROXETINE
     Dosage: UNK (1 TO BE TAKEN IN MONTH)
     Dates: start: 20000502, end: 20000601
  42. PAROXETINE [Suspect]
     Active Substance: PAROXETINE
     Dosage: UNK (1 TO BE TAKEN DAILY)
     Dates: start: 20070424, end: 20070522
  43. PAROXETINE [Suspect]
     Active Substance: PAROXETINE
     Dosage: UNK (1 TO BE TAKEN IN MONTH)
     Dates: start: 20001006, end: 20001105
  44. PAROXETINE [Suspect]
     Active Substance: PAROXETINE
     Dosage: UNK (1 TO BE TAKEN IN MONTH)
     Dates: start: 20001116, end: 20001216
  45. PAROXETINE [Suspect]
     Active Substance: PAROXETINE
     Dosage: UNK (1 TO BE TAKEN DAILY)
     Dates: start: 20080303, end: 20080331
  46. PAROXETINE [Suspect]
     Active Substance: PAROXETINE
     Dosage: UNK (1 TO BE TAKEN EACH MORNING)
     Dates: start: 20130205, end: 20130402
  47. PAROXETINE [Suspect]
     Active Substance: PAROXETINE
     Dosage: UNK (TAKE 1 DAILY)
     Dates: start: 20151222, end: 20160216
  48. PAROXETINE [Suspect]
     Active Substance: PAROXETINE
     Dosage: UNK (1 TO BE TAKEN EACH MORNING)
     Dates: start: 20140630, end: 20140728
  49. PAROXETINE [Suspect]
     Active Substance: PAROXETINE
     Dosage: UNK (1 TO BE TAKEN EACH MORNING)
     Dates: start: 20120927, end: 20121122
  50. PAROXETINE [Suspect]
     Active Substance: PAROXETINE
     Dosage: UNK (1 TO BE TAKEN EACH MORNING)
     Dates: start: 20110201, end: 20110303
  51. PAROXETINE [Suspect]
     Active Substance: PAROXETINE
     Indication: Product used for unknown indication
     Dosage: 10 MILLILITER, QD
     Dates: start: 20070119, end: 20070120
  52. PAROXETINE [Suspect]
     Active Substance: PAROXETINE
     Dosage: 1.5 MILLILITER, QD
     Dates: start: 20150209, end: 20150406
  53. PAROXETINE [Suspect]
     Active Substance: PAROXETINE
     Dosage: 10 MILLILITER, QD
     Dates: start: 20061207, end: 20061208
  54. PAROXETINE [Suspect]
     Active Substance: PAROXETINE
     Dosage: UNK (AS DIRECTED)
     Dates: start: 20051003, end: 20051004
  55. PAROXETINE [Suspect]
     Active Substance: PAROXETINE
     Dosage: 5 MILLILITER, QD
     Dates: start: 20060627, end: 20060628
  56. PAROXETINE [Suspect]
     Active Substance: PAROXETINE
     Dosage: UNK (AS DIRECTED)
     Dates: start: 20051220, end: 20051221
  57. PAROXETINE HYDROCHLORIDE [Suspect]
     Active Substance: PAROXETINE HYDROCHLORIDE
     Indication: Perinatal depression
     Dosage: 20 MILLIGRAM
  58. PAROXETINE HYDROCHLORIDE [Suspect]
     Active Substance: PAROXETINE HYDROCHLORIDE
     Dosage: 10 MILLIGRAM
     Dates: start: 1987
  59. PAROXETINE HYDROCHLORIDE [Suspect]
     Active Substance: PAROXETINE HYDROCHLORIDE
     Dosage: 30 MILLIGRAM
     Dates: end: 2015

REACTIONS (25)
  - Hospitalisation [Unknown]
  - Psychotic disorder [Unknown]
  - Psychiatric symptom [Unknown]
  - Emotional poverty [Unknown]
  - Disorientation [Unknown]
  - Stress [Unknown]
  - Anger [Unknown]
  - Feeling abnormal [Unknown]
  - Tooth extraction [Unknown]
  - Paranoia [Unknown]
  - Loss of libido [Unknown]
  - Alopecia [Unknown]
  - Depressed mood [Unknown]
  - Hypoaesthesia [Unknown]
  - Crying [Unknown]
  - Abnormal behaviour [Unknown]
  - Paraesthesia [Unknown]
  - Withdrawal syndrome [Unknown]
  - Hyperhidrosis [Unknown]
  - Nervousness [Unknown]
  - Headache [Unknown]
  - Fatigue [Unknown]
  - Palpitations [Unknown]
  - Mood swings [Unknown]
  - Adverse drug reaction [Unknown]
